FAERS Safety Report 7135777-8 (Version None)
Quarter: 2010Q4

REPORT INFORMATION
  Report Type: 
  Country: None (occurrence: None)
  Receive Date: 20101203
  Receipt Date: 20101122
  Transmission Date: 20110411
  Serious: Yes (Hospitalization)
  Sender: FDA-Public Use
  Company Number: DE-GENENTECH-306069

PATIENT
  Age: 53 Year
  Sex: Female
  Weight: 55 kg

DRUGS (6)
  1. MABTHERA [Suspect]
     Indication: RHEUMATOID ARTHRITIS
     Dosage: 2000 MG, UNK
     Route: 042
     Dates: start: 20090101, end: 20100630
  2. PARACETAMOL [Suspect]
     Indication: PYREXIA
     Dosage: 1 G, UNK
     Route: 048
     Dates: start: 20100616, end: 20100630
  3. MTX [Suspect]
     Indication: RHEUMATOID ARTHRITIS
     Dosage: 15 MG, UNK
     Route: 048
     Dates: start: 20000101, end: 20100705
  4. PREDNISOLONE [Concomitant]
     Indication: RHEUMATOID ARTHRITIS
     Dosage: 5 MG, UNK
     Route: 048
     Dates: end: 19970101
  5. PREDNISOLONE [Concomitant]
     Dosage: UNK
     Route: 048
  6. PREDNISOLONE [Concomitant]
     Dosage: UNK
     Route: 048
     Dates: start: 20100710

REACTIONS (20)
  - ALANINE AMINOTRANSFERASE INCREASED [None]
  - ASPARTATE AMINOTRANSFERASE INCREASED [None]
  - ASTHENIA [None]
  - BLOOD ALBUMIN DECREASED [None]
  - BLOOD ALBUMIN INCREASED [None]
  - C-REACTIVE PROTEIN INCREASED [None]
  - CYTOMEGALOVIRUS INFECTION [None]
  - DECREASED APPETITE [None]
  - DRUG TOXICITY [None]
  - FATIGUE [None]
  - GAMMA-GLUTAMYLTRANSFERASE INCREASED [None]
  - GENE MUTATION [None]
  - HAEMOCHROMATOSIS [None]
  - HEPATIC CIRRHOSIS [None]
  - IRON OVERLOAD [None]
  - LIVER DISORDER [None]
  - LIVER INJURY [None]
  - OSTEOPENIA [None]
  - TRANSFERRIN SATURATION INCREASED [None]
  - VOMITING [None]
